FAERS Safety Report 5756986-6 (Version None)
Quarter: 2008Q2

REPORT INFORMATION
  Report Type: 
  Country: None (occurrence: None)
  Receive Date: 20080603
  Receipt Date: 20080522
  Transmission Date: 20081010
  Serious: Yes (Hospitalization)
  Sender: FDA-Public Use
  Company Number: JP-ELI_LILLY_AND_COMPANY-JP200805005004

PATIENT
  Age: 54 Year
  Sex: Male

DRUGS (1)
  1. GEMZAR [Suspect]
     Indication: BILE DUCT CANCER
     Dosage: 800 MG, OTHER
     Route: 042
     Dates: start: 20080212, end: 20080306

REACTIONS (1)
  - DEEP VEIN THROMBOSIS [None]
